FAERS Safety Report 6530208-0 (Version None)
Quarter: 2010Q1

REPORT INFORMATION
  Report Type: 
  Country: None (occurrence: None)
  Receive Date: 20100107
  Receipt Date: 20090206
  Transmission Date: 20100710
  Serious: No
  Sender: FDA-Public Use
  Company Number: A0768315A

PATIENT
  Sex: Female

DRUGS (1)
  1. TAGAMET [Suspect]
     Indication: DRUG USE FOR UNKNOWN INDICATION

REACTIONS (1)
  - ALOPECIA [None]
